FAERS Safety Report 5775407-0 (Version None)
Quarter: 2008Q2

REPORT INFORMATION
  Report Type: 
  Country: None (occurrence: None)
  Receive Date: 20080613
  Receipt Date: 20080603
  Transmission Date: 20081010
  Serious: Yes (Other)
  Sender: FDA-Public Use
  Company Number: 2008014392

PATIENT
  Age: 19 Year
  Sex: Female
  Weight: 50.8029 kg

DRUGS (1)
  1. LISTERINE WHITENING QUICK DISSOLVING STRIPS (NO ACTIVE INGREDIENT) [Suspect]
     Indication: DENTAL CARE
     Dosage: 2 STRIPS TWICE DAILY,ORAL
     Route: 048
     Dates: start: 20080531, end: 20080602

REACTIONS (2)
  - APPLICATION SITE BURN [None]
  - GINGIVAL ERYTHEMA [None]
